FAERS Safety Report 14483271 (Version 1)
Quarter: 2018Q1

REPORT INFORMATION
  Report Type: Spontaneous
  Country: US (occurrence: US)
  Receive Date: 20180204
  Receipt Date: 20180204
  Transmission Date: 20180509
  Serious: Yes (Hospitalization, Other)
  Sender: FDA-Public Use
  Company Number: US-GLAXOSMITHKLINE-US2018017131

PATIENT
  Age: 73 Year
  Sex: Female

DRUGS (8)
  1. CHLORTHALIDONE. [Concomitant]
     Active Substance: CHLORTHALIDONE
  2. ANORO ELLIPTA [Suspect]
     Active Substance: UMECLIDINIUM BROMIDE\VILANTEROL TRIFENATATE
     Indication: ASTHMA
     Dosage: 1 PUFF(S), QD
     Route: 055
     Dates: start: 2015
  3. ATROPINE AND DIPHENOXYLATE [Concomitant]
  4. MONTELUKAST [Concomitant]
     Active Substance: MONTELUKAST SODIUM
  5. OMEPRAZOLE. [Concomitant]
     Active Substance: OMEPRAZOLE
  6. DICYCLOMINE [Concomitant]
     Active Substance: DICYCLOMINE HYDROCHLORIDE
  7. LEVOTHYROXINE. [Concomitant]
     Active Substance: LEVOTHYROXINE
  8. BUPROPION XL [Concomitant]
     Active Substance: BUPROPION

REACTIONS (8)
  - Exostosis [Unknown]
  - Product use in unapproved indication [Unknown]
  - Intervertebral disc operation [Recovering/Resolving]
  - Spinal operation [Recovering/Resolving]
  - Intervertebral disc degeneration [Unknown]
  - Colonoscopy [Unknown]
  - Spinal fusion surgery [Recovering/Resolving]
  - Irritable bowel syndrome [Not Recovered/Not Resolved]

NARRATIVE: CASE EVENT DATE: 2017
